FAERS Safety Report 10855212 (Version 1)
Quarter: 2015Q1

REPORT INFORMATION
  Report Type: Spontaneous
  Country: US (occurrence: US)
  Receive Date: 20150223
  Receipt Date: 20150223
  Transmission Date: 20150721
  Serious: Yes (Other)
  Sender: FDA-Public Use
  Company Number: US-JNJFOC-20150209482

PATIENT
  Sex: Female
  Weight: 108.86 kg

DRUGS (1)
  1. NEOSPORIN PLUS PAIN RELIEF CREAM [Suspect]
     Active Substance: BACITRACIN ZINC\LIDOCAINE\NEOMYCIN\POLYMYXIN B SULFATE
     Indication: LACERATION
     Route: 061

REACTIONS (3)
  - Infection [Unknown]
  - Sepsis [Unknown]
  - Impaired healing [Unknown]
